FAERS Safety Report 6252442-X (Version None)
Quarter: 2009Q2

REPORT INFORMATION
  Report Type: 
  Country: None (occurrence: None)
  Receive Date: 20090629
  Receipt Date: 20090615
  Transmission Date: 20091009
  Serious: Yes (Other)
  Sender: FDA-Public Use
  Company Number: 236327K09USA

PATIENT
  Age: 44 Year
  Sex: Female
  Weight: 91 kg

DRUGS (6)
  1. REBIF [Suspect]
     Indication: MULTIPLE SCLEROSIS
     Dosage: 44 MCG, 3 IN 1 WEEKS, SUBCUTANEOUS
     Route: 058
     Dates: start: 20090416
  2. LASIX [Concomitant]
  3. DIAZIDE (GLICIAZIDE) [Concomitant]
  4. SINGULAIR [Concomitant]
  5. ADVAIR HFA [Concomitant]
  6. ALLEGRA [Concomitant]

REACTIONS (14)
  - ARTHRALGIA [None]
  - ARTHRITIS [None]
  - BACK PAIN [None]
  - DIZZINESS [None]
  - FACIAL PALSY [None]
  - FALL [None]
  - FEELING COLD [None]
  - HYPOAESTHESIA [None]
  - HYPOTENSION [None]
  - INJECTION SITE HAEMATOMA [None]
  - PALPITATIONS [None]
  - PARAESTHESIA [None]
  - SYNCOPE [None]
  - WEIGHT DECREASED [None]
